FAERS Safety Report 20704129 (Version 1)
Quarter: 2022Q2

REPORT INFORMATION
  Report Type: Spontaneous
  Country: US (occurrence: US)
  Receive Date: 20220413
  Receipt Date: 20220413
  Transmission Date: 20220720
  Serious: No
  Sender: FDA-Public Use
  Company Number: US-ORGANON-O2202USA002278

PATIENT
  Age: 31 Year
  Sex: Female
  Weight: 104.31 kg

DRUGS (1)
  1. NEXPLANON [Suspect]
     Active Substance: ETONOGESTREL
     Indication: Contraception
     Dosage: 1 IMPLANT OF 68 MG EVERY 3 YEARS IN LEFT ARM
     Route: 059
     Dates: start: 202010

REACTIONS (23)
  - Axillary pain [Unknown]
  - Lymph node pain [Unknown]
  - Morning sickness [Unknown]
  - Adnexa uteri pain [Unknown]
  - Fear [Unknown]
  - Retching [Unknown]
  - Complication of device removal [Not Recovered/Not Resolved]
  - Device placement issue [Not Recovered/Not Resolved]
  - Device issue [Not Recovered/Not Resolved]
  - Vomiting [Unknown]
  - Weight increased [Not Recovered/Not Resolved]
  - Back pain [Not Recovered/Not Resolved]
  - Arthralgia [Unknown]
  - Amenorrhoea [Recovered/Resolved]
  - Implant site scar [Unknown]
  - Implant site bruising [Not Recovered/Not Resolved]
  - Nausea [Not Recovered/Not Resolved]
  - Implant site pain [Not Recovered/Not Resolved]
  - Implant site pruritus [Not Recovered/Not Resolved]
  - Depression [Not Recovered/Not Resolved]
  - Implant site fibrosis [Not Recovered/Not Resolved]
  - Amenorrhoea [Not Recovered/Not Resolved]
  - Needle issue [Unknown]

NARRATIVE: CASE EVENT DATE: 20201201
